FAERS Safety Report 6186073-7 (Version None)
Quarter: 2009Q2

REPORT INFORMATION
  Report Type: 
  Country: None (occurrence: None)
  Receive Date: 20090507
  Receipt Date: 20090423
  Transmission Date: 20091009
  Serious: Yes (Other)
  Sender: FDA-Public Use
  Company Number: 09-000464

PATIENT
  Age: 54 Year
  Sex: Female
  Weight: 101.6 kg

DRUGS (7)
  1. DORYX [Suspect]
     Indication: ECZEMA
     Dosage: 150 MG, QD, ORAL
     Route: 048
     Dates: start: 20090306, end: 20090320
  2. DORYX [Suspect]
     Indication: STAPHYLOCOCCAL INFECTION
     Dosage: 150 MG, QD, ORAL
     Route: 048
     Dates: start: 20090306, end: 20090320
  3. VENLAFAXINE HCL [Concomitant]
  4. TRAZODONE HCL [Concomitant]
  5. XANAX [Concomitant]
  6. METOPROLOL TARTRATE [Concomitant]
  7. LEVOTHYROXINE SODIUM [Concomitant]

REACTIONS (5)
  - POLYARTHRITIS [None]
  - RASH ERYTHEMATOUS [None]
  - RASH GENERALISED [None]
  - RASH PRURITIC [None]
  - VITAMIN D DECREASED [None]
